FAERS Safety Report 4393631-9 (Version None)
Quarter: 2004Q3

REPORT INFORMATION
  Report Type: 
  Country: None (occurrence: None)
  Receive Date: 20040709
  Receipt Date: 20040705
  Transmission Date: 20050211
  Serious: Yes (Other)
  Sender: FDA-Public Use
  Company Number: 200416638GDDC

PATIENT
  Age: 34 Year
  Sex: Male
  Weight: 69.85 kg

DRUGS (2)
  1. METRONIDAZOLE [Suspect]
     Indication: TOOTH DISORDER
     Route: 048
     Dates: start: 20040617, end: 20040619
  2. VENTOLIN [Concomitant]
     Dosage: DOSE: 1 PUFF
     Route: 055

REACTIONS (2)
  - CHEST DISCOMFORT [None]
  - PALPITATIONS [None]
